FAERS Safety Report 16385128 (Version 2)
Quarter: 2019Q3

REPORT INFORMATION
  Report Type: Spontaneous
  Country: US (occurrence: US)
  Receive Date: 20190603
  Receipt Date: 20190708
  Transmission Date: 20191004
  Serious: Yes (Death)
  Sender: FDA-Public Use
  Company Number: US-PFIZER INC-2019174850

PATIENT
  Age: 74 Year
  Sex: Female
  Weight: 61.69 kg

DRUGS (3)
  1. ZYVOX [Suspect]
     Active Substance: LINEZOLID
     Indication: INFECTION
     Dosage: 500 MG, 2X/DAY
     Route: 048
  2. ZYVOX [Suspect]
     Active Substance: LINEZOLID
     Indication: OSTEOMYELITIS
     Dosage: 600 MG, 2X/DAY
     Route: 048
     Dates: start: 20190422, end: 20190510
  3. CEPHALEXIN AMEL [Concomitant]
     Active Substance: CEPHALEXIN
     Indication: URINARY TRACT INFECTION
     Dosage: 300 MG, 2X/DAY
     Dates: start: 20190422

REACTIONS (5)
  - Nausea [Recovered/Resolved]
  - Post procedural complication [Fatal]
  - Product prescribing issue [Unknown]
  - Bacterial infection [Unknown]
  - Off label use [Unknown]

NARRATIVE: CASE EVENT DATE: 20190423
